FAERS Safety Report 8573923 (Version 6)
Quarter: 2014Q1

REPORT INFORMATION
  Report Type: Report from Study
  Country: JP (occurrence: JP)
  Receive Date: 20120522
  Receipt Date: 20140325
  Transmission Date: 20141002
  Serious: Yes (Life-Threatening, Other)
  Sender: FDA-Public Use
  Company Number: JP-PFIZER INC-2012118544

PATIENT
  Age: 57 Year
  Sex: Male
  Weight: 93 kg

DRUGS (10)
  1. TORISEL [Suspect]
     Indication: METASTATIC RENAL CELL CARCINOMA
     Dosage: 25 MG, CYCLIC, WEEKLY
     Route: 042
     Dates: start: 20120126, end: 20120209
  2. RESTAMIN [Concomitant]
     Indication: PROPHYLAXIS
     Dosage: 50 MG, WEEKLY
     Route: 048
     Dates: start: 20120126, end: 20120209
  3. AMLODIN [Concomitant]
     Dosage: 5 MG, 1X/DAY
     Route: 048
  4. HERBAL EXTRACTS NOS [Concomitant]
     Indication: RENAL CELL CARCINOMA
     Dosage: UNK
     Route: 048
  5. FERROMIA [Concomitant]
     Dosage: 50 MG, 2X/DAY
     Route: 048
  6. URSO [Concomitant]
     Dosage: 100 MG, 2X/DAY
     Route: 048
  7. CARDENALIN [Concomitant]
     Dosage: 2 MG, 2X/DAY
     Route: 048
  8. TAKEPRON [Concomitant]
     Dosage: 15 MG, 1X/DAY
     Route: 048
  9. THYRADIN S [Concomitant]
     Dosage: 125 UG, 1X/DAY
  10. DECADRON [Concomitant]
     Dosage: 1 MG, 3X/DAY
     Route: 048

REACTIONS (1)
  - Pneumocystis jirovecii pneumonia [Recovered/Resolved]
